FAERS Safety Report 7648714-4 (Version None)
Quarter: 2011Q3

REPORT INFORMATION
  Report Type: 
  Country: None (occurrence: None)
  Receive Date: 20110801
  Receipt Date: 20110722
  Transmission Date: 20111222
  Serious: Yes (Other)
  Sender: FDA-Public Use
  Company Number: PHHO2011AU10769

PATIENT
  Sex: Female

DRUGS (1)
  1. TASIGNA [Suspect]
     Indication: SYSTEMIC MASTOCYTOSIS
     Dosage: 400 MG, BID
     Route: 048
     Dates: start: 20100828

REACTIONS (1)
  - DRUG INTOLERANCE [None]
